FAERS Safety Report 15074847 (Version 1)
Quarter: 2018Q2

REPORT INFORMATION
  Report Type: Report from Study
  Country: US (occurrence: US)
  Receive Date: 20180627
  Receipt Date: 20180627
  Transmission Date: 20180711
  Serious: No
  Sender: FDA-Public Use
  Company Number: US-SAOL THERAPEUTICS-2017SAO01299

PATIENT
  Age: 44 Year
  Sex: Male

DRUGS (29)
  1. COMPOUNDED BACLOFEN [Suspect]
     Active Substance: BACLOFEN
     Dosage: 525.66 ?G, \DAY - MAX
     Route: 037
     Dates: start: 20170601
  2. COMPOUNDED BACLOFEN [Suspect]
     Active Substance: BACLOFEN
     Dosage: 280.72 ?G \DAY - MAX
     Route: 037
     Dates: start: 20170815, end: 20170815
  3. COMPOUNDED BACLOFEN [Suspect]
     Active Substance: BACLOFEN
     Dosage: 375.52 ?G, \DAY
     Route: 037
     Dates: start: 20170504
  4. COMPOUNDED BACLOFEN [Suspect]
     Active Substance: BACLOFEN
     Dosage: 585.60 ?G, \DAY - MAX
     Route: 037
     Dates: start: 20170504, end: 20170601
  5. COMPOUNDED BACLOFEN [Suspect]
     Active Substance: BACLOFEN
     Dosage: 174.93 ?G, \DAY
     Route: 037
     Dates: start: 20170815
  6. BUPIVACAINE. [Suspect]
     Active Substance: BUPIVACAINE
     Dosage: 12.517 MG, \DAY
     Route: 037
     Dates: start: 20170504
  7. BUPIVACAINE. [Suspect]
     Active Substance: BUPIVACAINE
     Dosage: 6.667 MG, \DAY
     Route: 037
     Dates: start: 20170815, end: 20170815
  8. CLONIDINE. [Suspect]
     Active Substance: CLONIDINE
     Dosage: 244.00 ?G, \DAY - MAX
     Route: 037
     Dates: start: 20170504, end: 20170601
  9. COMPOUNDED BACLOFEN [Suspect]
     Active Substance: BACLOFEN
     Dosage: 256.06 ?G, \DAY - MAX
     Route: 037
     Dates: start: 20170815
  10. BUPIVACAINE. [Suspect]
     Active Substance: BUPIVACAINE
     Dosage: 9.357 MG, \DAY - MAX
     Route: 037
     Dates: start: 20170815, end: 20170815
  11. BUPIVACAINE. [Suspect]
     Active Substance: BUPIVACAINE
     Dosage: 8.535 MG, \DAY - MAX
     Route: 037
     Dates: start: 20170815
  12. CLONIDINE. [Suspect]
     Active Substance: CLONIDINE
     Dosage: 83.34 ?G, \DAY
     Route: 037
     Dates: start: 20170815, end: 20170815
  13. CLONIDINE. [Suspect]
     Active Substance: CLONIDINE
     Dosage: 116.97 ?G, \DAY - MAX
     Route: 037
     Dates: start: 20170815, end: 20170815
  14. HYDROMORPHONE HYDROCHLORIDE. [Suspect]
     Active Substance: HYDROMORPHONE HYDROCHLORIDE
     Dosage: 2.0001 MG, \DAY
     Route: 037
     Dates: start: 20170815, end: 20170815
  15. CLONIDINE. [Suspect]
     Active Substance: CLONIDINE
     Dosage: 72.89 ?G, \DAY
     Route: 037
     Dates: start: 20170815
  16. BUPIVACAINE. [Suspect]
     Active Substance: BUPIVACAINE
     Dosage: 19.520 MG, \DAY - MAX
     Route: 037
     Dates: start: 20170504, end: 20170601
  17. BUPIVACAINE. [Suspect]
     Active Substance: BUPIVACAINE
     Dosage: 5.831 MG, \DAY
     Route: 037
     Dates: start: 20170815
  18. CLONIDINE. [Suspect]
     Active Substance: CLONIDINE
     Dosage: 219.02 ?G, \DAY - MAX
     Route: 037
     Dates: start: 20170601
  19. COMPOUNDED BACLOFEN [Suspect]
     Active Substance: BACLOFEN
     Dosage: 200.01 MG, \DAY
     Route: 037
     Dates: start: 20170815, end: 20170815
  20. HYDROMORPHONE HYDROCHLORIDE. [Suspect]
     Active Substance: HYDROMORPHONE HYDROCHLORIDE
     Dosage: 5.856 MG, \DAY - MAX
     Route: 037
     Dates: start: 20170504, end: 20170601
  21. HYDROMORPHONE HYDROCHLORIDE. [Suspect]
     Active Substance: HYDROMORPHONE HYDROCHLORIDE
     Dosage: 5.256 MG, \DAY - MAX
     Route: 037
     Dates: start: 20170601
  22. BUPIVACAINE. [Suspect]
     Active Substance: BUPIVACAINE
     Dosage: 17.522 MG, \DAY - MAX
     Route: 037
     Dates: start: 20170601
  23. CLONIDINE. [Suspect]
     Active Substance: CLONIDINE
     Dosage: 156.47 ?G, \DAY
     Route: 037
     Dates: start: 20170504
  24. CLONIDINE. [Suspect]
     Active Substance: CLONIDINE
     Dosage: 106.69 ?G, \DAY - MAX
     Route: 037
     Dates: start: 20170815
  25. HYDROMORPHONE HYDROCHLORIDE. [Suspect]
     Active Substance: HYDROMORPHONE HYDROCHLORIDE
     Dosage: 3.7552 MG, \DAY
     Route: 037
     Dates: start: 20170504
  26. HYDROMORPHONE HYDROCHLORIDE. [Suspect]
     Active Substance: HYDROMORPHONE HYDROCHLORIDE
     Dosage: 1.749 MG, \DAY
     Route: 037
     Dates: start: 20170815
  27. COMPOUNDED BACLOFEN [Suspect]
     Active Substance: BACLOFEN
     Dosage: UNK
     Route: 037
     Dates: start: 20170815
  28. HYDROMORPHONE HYDROCHLORIDE. [Suspect]
     Active Substance: HYDROMORPHONE HYDROCHLORIDE
     Dosage: 2.807 MG, \DAY - MAX
     Route: 037
     Dates: start: 20170815, end: 20170815
  29. HYDROMORPHONE HYDROCHLORIDE. [Suspect]
     Active Substance: HYDROMORPHONE HYDROCHLORIDE
     Dosage: 2.560 MG, \DAY - MAX
     Route: 037
     Dates: start: 20170815

REACTIONS (5)
  - Fatigue [Not Recovered/Not Resolved]
  - Device occlusion [Unknown]
  - Hypoaesthesia [Recovered/Resolved]
  - Implant site pain [Recovered/Resolved]
  - Device failure [Unknown]

NARRATIVE: CASE EVENT DATE: 20170601
